FAERS Safety Report 7214322-2 (Version None)
Quarter: 2011Q1

REPORT INFORMATION
  Report Type: 
  Country: None (occurrence: None)
  Receive Date: 20110107
  Receipt Date: 20101228
  Transmission Date: 20110831
  Serious: Yes (Other)
  Sender: FDA-Public Use
  Company Number: PHHY2010CA89386

PATIENT
  Sex: Female

DRUGS (2)
  1. ACLASTA [Suspect]
     Indication: OSTEOPOROSIS
     Dosage: UNK
     Dates: start: 20090212
  2. ACLASTA [Suspect]
     Dosage: UNK
     Dates: start: 20100128

REACTIONS (3)
  - ARTHRALGIA [None]
  - BREAST MASS [None]
  - HYPOKINESIA [None]
